FAERS Safety Report 4763763-1 (Version None)
Quarter: 2005Q3

REPORT INFORMATION
  Report Type: 
  Country: None (occurrence: None)
  Receive Date: 20050908
  Receipt Date: 20050902
  Transmission Date: 20060218
  Serious: Yes (Other)
  Sender: FDA-Public Use
  Company Number: PHNU2005DE03035

PATIENT
  Sex: Female

DRUGS (4)
  1. ZOMETA [Suspect]
     Indication: METASTASES TO BONE
     Dosage: 4 MG, QMO
     Dates: start: 19980101
  2. BISOPROLOL [Concomitant]
     Route: 048
  3. ASPIRIN [Concomitant]
     Route: 065
  4. ATOSIL [Concomitant]
     Route: 065

REACTIONS (1)
  - ASEPTIC NECROSIS BONE [None]
